FAERS Safety Report 8841368 (Version 1)
Quarter: 2012Q4

REPORT INFORMATION
  Report Type: 
  Country: US (occurrence: US)
  Receive Date: 20121015
  Receipt Date: 20121015
  Transmission Date: 20130627
  Serious: No
  Sender: FDA-Public Use
  Company Number: US-BAYER-2012-105811

PATIENT
  Age: 73 Year
  Sex: Female
  Weight: 102.4 kg

DRUGS (5)
  1. ALEVE CAPLET/TABLET,MIDOL EXTENDED RELIEF CAPLET [Suspect]
     Indication: ARTHRITIS
     Dosage: 4 DF,in 6 Hours
     Dates: start: 20121001, end: 20121002
  2. HIGH CHOLESTEROL MEDICATION [Concomitant]
  3. ATIVAN [Concomitant]
  4. ANTIHYPERTENSIVES [Concomitant]
  5. INSULIN [Concomitant]

REACTIONS (1)
  - No adverse event [None]
